FAERS Safety Report 6805569-5 (Version None)
Quarter: 2010Q2

REPORT INFORMATION
  Report Type: 
  Country: None (occurrence: None)
  Receive Date: 20100628
  Receipt Date: 20080118
  Transmission Date: 20101027
  Serious: No
  Sender: FDA-Public Use
  Company Number: US-PFIZER INC-2007100822

PATIENT
  Age: 68 Year
  Sex: Female

DRUGS (2)
  1. CADUET [Suspect]
     Indication: HYPERLIPIDAEMIA
     Dosage: 5/10 MG
     Route: 048
  2. CADUET [Suspect]
     Indication: HYPERTENSION

REACTIONS (1)
  - BLOOD CREATINE PHOSPHOKINASE INCREASED [None]
